FAERS Safety Report 7681458-1 (Version None)
Quarter: 2011Q3

REPORT INFORMATION
  Report Type: 
  Country: None (occurrence: None)
  Receive Date: 20110812
  Receipt Date: 20110804
  Transmission Date: 20111222
  Serious: Yes (Hospitalization)
  Sender: FDA-Public Use
  Company Number: US-BAXTER-2011BH024448

PATIENT
  Age: 77 Year
  Sex: Male

DRUGS (2)
  1. DIANEAL [Suspect]
     Indication: OFF LABEL USE
     Route: 033
     Dates: start: 20110601
  2. DIANEAL [Suspect]
     Indication: PERITONEAL DIALYSIS
     Route: 033
     Dates: start: 20110601

REACTIONS (2)
  - DEHYDRATION [None]
  - FLUID OVERLOAD [None]
